FAERS Safety Report 6314807-7 (Version None)
Quarter: 2009Q3

REPORT INFORMATION
  Report Type: 
  Country: None (occurrence: None)
  Receive Date: 20090819
  Receipt Date: 20090814
  Transmission Date: 20100115
  Serious: Yes (Hospitalization)
  Sender: FDA-Public Use
  Company Number: US-ASTRAZENECA-2009SE08129

PATIENT
  Age: 27471 Day
  Sex: Female

DRUGS (3)
  1. SYMBICORT [Suspect]
     Indication: WHEEZING
     Dosage: REPORTED DOSE 320 DAILY
     Route: 055
     Dates: start: 20090813
  2. PREDNISONE [Suspect]
     Indication: ASTHMA
     Route: 048
     Dates: start: 20090813
  3. SYNTHROID [Concomitant]
     Indication: HYPOTHYROIDISM
     Route: 048
     Dates: start: 20090812

REACTIONS (3)
  - COLD SWEAT [None]
  - DYSPNOEA [None]
  - HEADACHE [None]
